FAERS Safety Report 18563615 (Version 4)
Quarter: 2021Q1

REPORT INFORMATION
  Report Type: Spontaneous
  Country: PL (occurrence: PL)
  Receive Date: 20201201
  Receipt Date: 20210121
  Transmission Date: 20210419
  Serious: Yes (Other)
  Sender: FDA-Public Use
  Company Number: NVSC2020PL310369

PATIENT
  Age: 44 Year
  Sex: Male
  Weight: 100 kg

DRUGS (23)
  1. VALPROATE ACID [Suspect]
     Active Substance: VALPROATE SODIUM
     Indication: EPILEPSY
  2. VIGABATRIN. [Suspect]
     Active Substance: VIGABATRIN
     Indication: PARTIAL SEIZURES
  3. CARBAMAZEPINE. [Suspect]
     Active Substance: CARBAMAZEPINE
     Indication: PARTIAL SEIZURES
  4. VALPROATE ACID [Suspect]
     Active Substance: VALPROATE SODIUM
     Indication: PARTIAL SEIZURES
  5. VALPROATE ACID [Suspect]
     Active Substance: VALPROATE SODIUM
     Indication: GENERALISED TONIC-CLONIC SEIZURE
     Dosage: UNK
     Route: 065
  6. VALPROATE ACID [Suspect]
     Active Substance: VALPROATE SODIUM
     Indication: SEIZURE
  7. PHENOBARBITAL. [Suspect]
     Active Substance: PHENOBARBITAL
     Indication: GENERALISED TONIC-CLONIC SEIZURE
     Dosage: UNK
     Route: 065
  8. VIGABATRIN. [Suspect]
     Active Substance: VIGABATRIN
     Indication: SEIZURE
  9. LACOSAMIDE. [Suspect]
     Active Substance: LACOSAMIDE
     Indication: EPILEPSY
     Dosage: 50 MG, BIW (GRADUAL INITIATION OF THE DRUG WAS STARTED UP TO 150 MG TWICE, BY 50 MG EVERY 2 WEEKS)
     Route: 065
  10. LACOSAMIDE. [Suspect]
     Active Substance: LACOSAMIDE
     Indication: PARTIAL SEIZURES
     Dosage: 300 MG, QD (150 MILLIGRAM, 2X/DAY (BID))
     Route: 048
  11. PHENOBARBITAL. [Suspect]
     Active Substance: PHENOBARBITAL
     Indication: PARTIAL SEIZURES
  12. VIGABATRIN. [Suspect]
     Active Substance: VIGABATRIN
     Indication: EPILEPSY
  13. LAMOTRIGINE. [Suspect]
     Active Substance: LAMOTRIGINE
     Indication: EPILEPSY
     Dosage: 400 MG, QD
     Route: 065
  14. CARBAMAZEPINE. [Suspect]
     Active Substance: CARBAMAZEPINE
     Indication: GENERALISED TONIC-CLONIC SEIZURE
     Dosage: 3000 MG, QD (1500 MILLIGRAM, 2X/DAY (BID))
     Route: 048
  15. LAMOTRIGINE. [Suspect]
     Active Substance: LAMOTRIGINE
     Indication: PARTIAL SEIZURES
     Dosage: 800 MG, QD (400 MILLIGRAM PER DAY)
     Route: 048
  16. LACOSAMIDE. [Suspect]
     Active Substance: LACOSAMIDE
     Dosage: UNK, QD (GRADUALLY UPTITRATED AT 50MG INCREMENTS EVERY 2 WEEKS2X/ DAYS)
     Route: 048
  17. CARBAMAZEPINE. [Suspect]
     Active Substance: CARBAMAZEPINE
     Indication: SEIZURE
  18. PHENOBARBITAL. [Suspect]
     Active Substance: PHENOBARBITAL
     Indication: SEIZURE
  19. LAMOTRIGINE. [Suspect]
     Active Substance: LAMOTRIGINE
     Indication: SEIZURE
  20. LACOSAMIDE. [Suspect]
     Active Substance: LACOSAMIDE
     Indication: SEIZURE
     Dosage: 150 MG, QD (GRADUAL INITIATION OF THE DRUG WAS STARTED UP TO 150 MG TWICE, BY 50 MG EVERY 2 WEEKS)
     Route: 065
  21. CARBAMAZEPINE. [Suspect]
     Active Substance: CARBAMAZEPINE
     Indication: EPILEPSY
     Dosage: 1500 MG, QD
     Route: 065
  22. PHENOBARBITAL. [Suspect]
     Active Substance: PHENOBARBITAL
     Indication: EPILEPSY
  23. VIGABATRIN. [Suspect]
     Active Substance: VIGABATRIN
     Indication: GENERALISED TONIC-CLONIC SEIZURE
     Dosage: UNK
     Route: 065

REACTIONS (7)
  - Head injury [Unknown]
  - Partial seizures [Recovering/Resolving]
  - Dizziness [Recovered/Resolved]
  - Seizure [Recovered/Resolved]
  - Drug ineffective [Unknown]
  - Partial seizures with secondary generalisation [Recovering/Resolving]
  - Therapeutic product effect incomplete [Unknown]
